FAERS Safety Report 18647141 (Version 2)
Quarter: 2021Q1

REPORT INFORMATION
  Report Type: Spontaneous
  Country: US (occurrence: US)
  Receive Date: 20201222
  Receipt Date: 20210101
  Transmission Date: 20210419
  Serious: No
  Sender: FDA-Public Use
  Company Number: US-CELGENEUS-USA-20201205428

PATIENT
  Age: 41 Year
  Sex: Male

DRUGS (3)
  1. POMALYST [Suspect]
     Active Substance: POMALIDOMIDE
     Dosage: 5 MILLIGRAM
     Route: 048
     Dates: start: 20201230
  2. POMALYST [Suspect]
     Active Substance: POMALIDOMIDE
     Indication: MALIGNANT MELANOMA
     Dosage: 1 MILLIGRAM
     Route: 048
     Dates: start: 20201204
  3. TRUVADA [Concomitant]
     Active Substance: EMTRICITABINE\TENOFOVIR DISOPROXIL FUMARATE
     Indication: PROPHYLAXIS
     Dosage: 200,300
     Route: 048

REACTIONS (1)
  - Dermatitis [Recovered/Resolved]

NARRATIVE: CASE EVENT DATE: 20201210
